FAERS Safety Report 13289403 (Version 1)
Quarter: 2017Q1

REPORT INFORMATION
  Report Type: Spontaneous
  Country: EG (occurrence: EG)
  Receive Date: 20170303
  Receipt Date: 20170303
  Transmission Date: 20170428
  Serious: Yes (Death, Hospitalization, Other)
  Sender: FDA-Public Use
  Company Number: EG-AMGEN-EGYSP2017031638

PATIENT
  Sex: Male

DRUGS (1)
  1. ENBREL [Suspect]
     Active Substance: ETANERCEPT
     Indication: ANKYLOSING SPONDYLITIS
     Dosage: 2 DOSES, ONCE WEEKLY
     Route: 065

REACTIONS (3)
  - Cardiac disorder [Unknown]
  - Death [Fatal]
  - Eye infection [Unknown]

NARRATIVE: CASE EVENT DATE: 20170222
